FAERS Safety Report 9251866 (Version 1)
Quarter: 2013Q1

REPORT INFORMATION
  Report Type: Spontaneous
  Country: US (occurrence: None)
  Receive Date: 20130305
  Receipt Date: 20130305
  Transmission Date: 20140127
  Serious: Yes (Hospitalization)
  Sender: FDA-Public Use
  Company Number: 163-21880-12071838

PATIENT
  Age: 49 Year
  Sex: Male
  Weight: 97.52 kg

DRUGS (9)
  1. REVLIMID (LENALIDOMIDE) (CAPSULES) [Suspect]
     Indication: PLASMA CELL MYELOMA
     Dosage: 05/11/2012 - UNKNOWN, CAPSULE, 25 MG, 21 IN 21 D, PO
  2. ACYCLOVIR (ACICLOVIR) (ACICLOVIR) [Concomitant]
  3. VELCADE (BORTEZOMIB) [Concomitant]
  4. DEXAMETHASONE (DEXAMETHASONE) [Concomitant]
  5. AMBIEN (ZOLPIDEM TARTRATE) [Concomitant]
  6. CRESTOR (ROSUVASTATIN) [Concomitant]
  7. ASA (ACETYLSALICYLIC ACID) [Concomitant]
  8. COMPAZINE (PROCHLORPERAZINE EDISYLATE) [Concomitant]
  9. MS CONTIN [Concomitant]

REACTIONS (1)
  - Neutrophil count decreased [None]
